FAERS Safety Report 9524344 (Version 1)
Quarter: 2013Q3

REPORT INFORMATION
  Report Type: Spontaneous
  Country: US (occurrence: US)
  Receive Date: 20130916
  Receipt Date: 20130916
  Transmission Date: 20140515
  Serious: No
  Sender: FDA-Public Use
  Company Number: US-BAYER-2013-111311

PATIENT
  Age: 81 Year
  Sex: Female
  Weight: 59 kg

DRUGS (4)
  1. ALEVE TABLET [Suspect]
     Dosage: 1 DF, PRN
     Route: 048
  2. MULTIVITAMIN [Concomitant]
  3. FISH OIL [Concomitant]
  4. CALCIUM [Concomitant]

REACTIONS (1)
  - Drug ineffective [None]
